FAERS Safety Report 9331876 (Version 1)
Quarter: 2013Q2

REPORT INFORMATION
  Report Type: Spontaneous
  Country: US (occurrence: None)
  Receive Date: 20130603
  Receipt Date: 20130603
  Transmission Date: 20140414
  Serious: Yes (Hospitalization)
  Sender: FDA-Public Use
  Company Number: ACO_35816_2013

PATIENT
  Age: 47 Year
  Sex: Male
  Weight: 74.8 kg

DRUGS (15)
  1. AMPYRA [Suspect]
     Indication: GAIT DISTURBANCE
     Route: 048
     Dates: start: 201303, end: 20130421
  2. AMPYRA [Suspect]
     Indication: MULTIPLE SCLEROSIS
     Route: 048
     Dates: start: 201303, end: 20130421
  3. ACTHAR [Suspect]
     Dates: start: 201303
  4. AUBAGIO [Suspect]
     Route: 048
  5. TESTOSTERONE (TESTOSTERONE PROPIONATE) [Concomitant]
  6. OXYCODONE HCL (OXYCODONE HYDROCHLORIDE) [Concomitant]
  7. OXYCONTIN (OXYCODONE HYDROCHLORIDE) [Concomitant]
  8. XANAX (ALPRAZOLAM) [Concomitant]
  9. ADDERALL (AMFETAMINE ASPARTATE, AMFETAMINE SULFATE, DEXAMFETAMINE SACCHARATE, DEXAMFETAMINE SULFATE) [Concomitant]
  10. CLARITIN (LORATADINE) [Concomitant]
  11. PRENATAL (ASCORBIC ACID, CALCIUM PANTOTHENATE, CYANOCOBALAMIN, ERGOCALCIFEROL, NICOTINAMIDE, PYRIDOXINE HYDROCHLORIDE, RETINOL PALMITATE, RIBOFLAVIN, THIAMINE MONONITRATE) [Concomitant]
  12. COSAMIN (CHONDROITIN SULFATE, GLUCOSAMINE HYDROCHLORIDE, MANGANESE ASCORBATE) [Concomitant]
  13. ZOFRAN (ONDANSETRON HYDROCHLORIDE) [Concomitant]
  14. ABILIFY (ARIPIPRAZOLE) [Concomitant]
  15. SOMA CMPD (ACETYLSALICYLIC ACID, CARISOPRODOL) [Concomitant]

REACTIONS (8)
  - Fall [None]
  - Asthenia [None]
  - Multiple sclerosis relapse [None]
  - Balance disorder [None]
  - Constipation [None]
  - Drug dose omission [None]
  - Blood potassium decreased [None]
  - Insomnia [None]
